FAERS Safety Report 7758339-8 (Version None)
Quarter: 2011Q3

REPORT INFORMATION
  Report Type: 
  Country: None (occurrence: None)
  Receive Date: 20110825
  Receipt Date: 20110718
  Transmission Date: 20111222
  Serious: No
  Sender: FDA-Public Use
  Company Number: 332671

PATIENT
  Sex: Male

DRUGS (2)
  1. LANTUS [Concomitant]
  2. VICTOZA [Suspect]
     Indication: DIABETES MELLITUS
     Dosage: 1.8 MG, QD, SUBCUTANEOUS
     Route: 058
     Dates: start: 20110607

REACTIONS (1)
  - BLOOD GLUCOSE INCREASED [None]
